FAERS Safety Report 11811530 (Version 2)
Quarter: 2015Q4

REPORT INFORMATION
  Report Type: Spontaneous
  Country: IT (occurrence: IT)
  Receive Date: 20151208
  Receipt Date: 20151214
  Transmission Date: 20160305
  Serious: Yes (Hospitalization)
  Sender: FDA-Public Use
  Company Number: IT-PFIZER INC-2015420665

PATIENT
  Age: 77 Year
  Sex: Female

DRUGS (6)
  1. ROCEFIN [Suspect]
     Active Substance: CEFTRIAXONE SODIUM
     Indication: SKIN ULCER
     Dosage: 1 G, DAILY
     Route: 030
     Dates: start: 20151015, end: 20151026
  2. MUSCORIL [Suspect]
     Active Substance: THIOCOLCHICOSIDE
     Indication: ARTHRALGIA
     Dosage: 16 MG, DAILY
     Route: 048
     Dates: start: 20151111, end: 20151115
  3. CLEXANE [Suspect]
     Active Substance: ENOXAPARIN SODIUM
     Indication: THROMBOSIS PROPHYLAXIS
     Dosage: 4 IU, DAILY
     Route: 058
     Dates: start: 20151111, end: 20151115
  4. LYRICA [Suspect]
     Active Substance: PREGABALIN
     Indication: ARTHRALGIA
     Dosage: 25 MG, DAILY
     Route: 048
     Dates: start: 20151111, end: 20151115
  5. TARGOSID [Suspect]
     Active Substance: TEICOPLANIN
     Indication: SKIN ULCER
     Dosage: UNK, DAILY
     Route: 030
     Dates: start: 20151027, end: 20151110
  6. MEDROL [Concomitant]
     Active Substance: METHYLPREDNISOLONE
     Indication: PSORIATIC ARTHROPATHY
     Dosage: 8 MG, UNK
     Route: 048

REACTIONS (4)
  - Stevens-Johnson syndrome [Recovering/Resolving]
  - Toxic epidermal necrolysis [Recovering/Resolving]
  - Product use issue [Unknown]
  - Leukocytosis [Unknown]

NARRATIVE: CASE EVENT DATE: 20151111
